FAERS Safety Report 7353926-3 (Version None)
Quarter: 2011Q1

REPORT INFORMATION
  Report Type: 
  Country: None (occurrence: None)
  Receive Date: 20110315
  Receipt Date: 20110301
  Transmission Date: 20110831
  Serious: Yes (Hospitalization)
  Sender: FDA-Public Use
  Company Number: PHHY2011VE18051

PATIENT
  Sex: Female

DRUGS (6)
  1. LEVITRA [Concomitant]
  2. ACLASTA [Suspect]
     Indication: OSTEOPOROSIS
     Dosage: 5 MG, PER YEAR
     Dates: start: 20090101
  3. CALCIBON D [Concomitant]
  4. CAPTOPRIL [Concomitant]
  5. LIVIAL [Concomitant]
  6. CRESTOR [Concomitant]

REACTIONS (1)
  - CHEST PAIN [None]
